FAERS Safety Report 6092890-4 (Version None)
Quarter: 2009Q1

REPORT INFORMATION
  Report Type: 
  Country: None (occurrence: None)
  Receive Date: 20090225
  Receipt Date: 20090210
  Transmission Date: 20090719
  Serious: Yes (Other)
  Sender: FDA-Public Use
  Company Number: US-BAXTER-2008BH013955

PATIENT
  Age: 63 Year
  Sex: Female
  Weight: 106 kg

DRUGS (23)
  1. HEPARIN SODIUM INJECTION [Suspect]
     Indication: MYOCARDIAL INFARCTION
     Route: 042
     Dates: start: 20071227, end: 20071228
  2. HEPARIN SODIUM INJECTION [Suspect]
     Indication: UROSEPSIS
     Route: 042
     Dates: start: 20071227, end: 20071228
  3. HEPARIN SODIUM INJECTION [Suspect]
     Indication: RENAL FAILURE
     Route: 042
     Dates: start: 20071227, end: 20071228
  4. HEPARIN SODIUM INJECTION [Suspect]
     Indication: LITHOTRIPSY
     Route: 042
     Dates: start: 20071227, end: 20071228
  5. HEPARIN SODIUM INJECTION [Suspect]
     Indication: HOT FLUSH
     Route: 042
     Dates: start: 20071231
  6. ATACAND HCT [Concomitant]
     Indication: DRUG USE FOR UNKNOWN INDICATION
     Route: 065
  7. ATALOPRAM HBR [Concomitant]
     Indication: DRUG USE FOR UNKNOWN INDICATION
     Route: 065
  8. NOVOLOG [Concomitant]
     Indication: DIABETES MELLITUS
     Route: 058
     Dates: start: 20080115
  9. NAPROXEN [Concomitant]
     Indication: DRUG USE FOR UNKNOWN INDICATION
     Route: 065
  10. ACYCLOVIR [Concomitant]
     Indication: ENCEPHALITIS HERPES
     Route: 042
     Dates: start: 20080101
  11. ARGATROBAN [Concomitant]
     Indication: DRUG USE FOR UNKNOWN INDICATION
     Route: 065
     Dates: start: 20071227, end: 20071228
  12. UNKNOWN ANTIBIOTICS [Concomitant]
     Indication: CULTURE POSITIVE
  13. CLOPIDOGREL [Concomitant]
     Indication: DRUG USE FOR UNKNOWN INDICATION
     Route: 048
     Dates: start: 20071227, end: 20080126
  14. FUROSEMIDE [Concomitant]
     Indication: DRUG USE FOR UNKNOWN INDICATION
     Route: 048
     Dates: start: 20080107
  15. ASPIRIN [Concomitant]
     Indication: DRUG USE FOR UNKNOWN INDICATION
     Dates: start: 20080101
  16. ATKNOLOL [Concomitant]
     Indication: DRUG USE FOR UNKNOWN INDICATION
     Route: 048
     Dates: start: 20071231
  17. LANTUS [Concomitant]
     Indication: DIABETES MELLITUS
     Route: 058
     Dates: start: 20080123
  18. LISINOPRIL [Concomitant]
     Indication: DRUG USE FOR UNKNOWN INDICATION
     Route: 048
     Dates: start: 20080112
  19. PREVACID [Concomitant]
     Indication: DRUG USE FOR UNKNOWN INDICATION
     Route: 048
     Dates: start: 20080101
  20. SODIUM CHLORIDE 0.9% [Concomitant]
     Indication: HOT FLUSH
     Route: 042
     Dates: start: 20080101
  21. ACETAMINOPHEN [Concomitant]
     Indication: DRUG USE FOR UNKNOWN INDICATION
     Dates: start: 20080102
  22. OXYCODONE WITH APAP [Concomitant]
     Indication: DRUG USE FOR UNKNOWN INDICATION
     Route: 048
     Dates: start: 20071226, end: 20080125
  23. ZOLPIDEM [Concomitant]
     Indication: DRUG USE FOR UNKNOWN INDICATION
     Route: 048
     Dates: start: 20071226, end: 20080125

REACTIONS (15)
  - ADVERSE EVENT [None]
  - ANAPHYLACTIC SHOCK [None]
  - ASPIRATION [None]
  - ASTHENIA [None]
  - COAGULOPATHY [None]
  - COMA [None]
  - CONFUSIONAL STATE [None]
  - DELIRIUM [None]
  - DYSPHAGIA [None]
  - ENCEPHALITIS HERPES [None]
  - GENERAL PHYSICAL HEALTH DETERIORATION [None]
  - HYPOKINESIA [None]
  - PNEUMONIA [None]
  - RESPIRATORY FAILURE [None]
  - THROMBOCYTOPENIA [None]
